FAERS Safety Report 4695432-0 (Version None)
Quarter: 2005Q2

REPORT INFORMATION
  Report Type: 
  Country: None (occurrence: None)
  Receive Date: 20050620
  Receipt Date: 20050620
  Transmission Date: 20051028
  Serious: Yes (Hospitalization)
  Sender: FDA-Public Use
  Company Number: None

PATIENT
  Age: 76 Year
  Sex: Male
  Weight: 71.6683 kg

DRUGS (11)
  1. XELODA [Suspect]
     Indication: COLON CANCER METASTATIC
     Dosage: 850 MG/DM2 BID
     Dates: start: 20050504, end: 20050525
  2. XELODA [Suspect]
     Indication: METASTASES TO LIVER
     Dosage: 850 MG/DM2 BID
     Dates: start: 20050504, end: 20050525
  3. XELODA [Suspect]
     Indication: METASTASES TO LUNG
     Dosage: 850 MG/DM2 BID
     Dates: start: 20050504, end: 20050525
  4. OXALIPLATIN [Suspect]
     Dosage: 100 MG/M2 BID
     Dates: start: 20050504, end: 20050525
  5. FLAGYL [Concomitant]
  6. PEPCID [Concomitant]
  7. LEVAQUIN [Concomitant]
  8. PROCRIT [Concomitant]
  9. DIAZIDE [Concomitant]
  10. NS [Concomitant]
  11. POTASSIUM CHLORIDE [Concomitant]

REACTIONS (7)
  - ABDOMINAL PAIN [None]
  - ANAEMIA [None]
  - ASTHENIA [None]
  - DIARRHOEA [None]
  - GASTROINTESTINAL DISORDER [None]
  - NAUSEA [None]
  - VOMITING [None]
